FAERS Safety Report 5567487-2 (Version None)
Quarter: 2007Q4

REPORT INFORMATION
  Report Type: 
  Country: None (occurrence: None)
  Receive Date: 20071219
  Receipt Date: 20071210
  Transmission Date: 20080405
  Serious: Yes (Other)
  Sender: FDA-Public Use
  Company Number: FR-PFIZER INC-2007104333

PATIENT
  Sex: Female

DRUGS (9)
  1. QUINAPRIL HCL [Suspect]
     Route: 048
  2. ACTOS [Suspect]
     Indication: TYPE 2 DIABETES MELLITUS
     Route: 048
  3. AMARYL [Suspect]
     Indication: TYPE 2 DIABETES MELLITUS
     Dosage: DAILY DOSE:6MG
     Route: 048
  4. GLUCOPHAGE [Suspect]
     Indication: TYPE 2 DIABETES MELLITUS
     Dosage: DAILY DOSE:3GRAM
     Route: 048
  5. ZOCOR [Suspect]
     Indication: DYSLIPIDAEMIA
     Route: 048
  6. INDAPAMIDE [Suspect]
     Route: 048
  7. LIORESAL ^NOVARTIS^ [Suspect]
     Route: 048
  8. MYOLASTAN [Suspect]
     Route: 048
  9. AMPECYCLAL [Suspect]
     Route: 048

REACTIONS (1)
  - PATHOLOGICAL FRACTURE [None]
